FAERS Safety Report 26095286 (Version 1)
Quarter: 2025Q4

REPORT INFORMATION
  Report Type: Report from Study
  Country: US (occurrence: US)
  Receive Date: 20251127
  Receipt Date: 20251127
  Transmission Date: 20260117
  Serious: Yes (Other)
  Sender: GALDERMA
  Company Number: US-GALDERMA-US2025024407

PATIENT

DRUGS (2)
  1. NEMOLIZUMAB [Suspect]
     Active Substance: NEMOLIZUMAB
     Indication: Dermatitis
     Dosage: 60 MILLIGRAMS (2 PENS)
     Route: 058
     Dates: start: 202510, end: 202510
  2. NEMOLIZUMAB [Suspect]
     Active Substance: NEMOLIZUMAB
     Dosage: 30 MILLIGRAMS (1 PEN)
     Route: 058
     Dates: start: 202511, end: 202511

REACTIONS (8)
  - Autoimmune disorder [Unknown]
  - Iritis [Unknown]
  - Condition aggravated [Unknown]
  - Eye irritation [Unknown]
  - Eye pain [Unknown]
  - Ocular hyperaemia [Unknown]
  - Dry eye [Not Recovered/Not Resolved]
  - Inappropriate schedule of product administration [Recovered/Resolved]

NARRATIVE: CASE EVENT DATE: 20250101
